FAERS Safety Report 20785975 (Version 1)
Quarter: 2022Q2

REPORT INFORMATION
  Report Type: Spontaneous
  Country: US (occurrence: None)
  Receive Date: 20220504
  Receipt Date: 20220504
  Transmission Date: 20220721
  Serious: No
  Sender: FDA-Public Use
  Company Number: US-ROCHE-2982408

PATIENT
  Age: 50 Year
  Sex: Female

DRUGS (1)
  1. OCREVUS [Suspect]
     Active Substance: OCRELIZUMAB
     Indication: Primary progressive multiple sclerosis
     Route: 042
     Dates: start: 20120301

REACTIONS (10)
  - Fatigue [Unknown]
  - Micturition urgency [Unknown]
  - Gait disturbance [Unknown]
  - Asthenia [Not Recovered/Not Resolved]
  - Fatigue [Not Recovered/Not Resolved]
  - Gait disturbance [Not Recovered/Not Resolved]
  - Balance disorder [Unknown]
  - Fall [Unknown]
  - Musculoskeletal stiffness [Not Recovered/Not Resolved]
  - Feeling hot [Unknown]

NARRATIVE: CASE EVENT DATE: 20211201
